FAERS Safety Report 6684528-X (Version None)
Quarter: 2010Q2

REPORT INFORMATION
  Report Type: 
  Country: None (occurrence: None)
  Receive Date: 20100416
  Receipt Date: 20100415
  Transmission Date: 20101027
  Serious: Yes (Hospitalization)
  Sender: FDA-Public Use
  Company Number: FR-ROCHE-694645

PATIENT
  Sex: Female

DRUGS (16)
  1. ROCEPHIN [Suspect]
     Route: 042
     Dates: start: 20100203, end: 20100208
  2. ROVAMYCINE [Suspect]
     Route: 048
     Dates: start: 20100203, end: 20100208
  3. FLAGYL [Suspect]
     Route: 048
     Dates: start: 20100203, end: 20100211
  4. FORLAX [Concomitant]
  5. LASIX [Concomitant]
  6. VITAMIN C [Concomitant]
  7. CITALOPRAM HYDROBROMIDE [Concomitant]
     Indication: BIPOLAR DISORDER
  8. IMOVANE [Concomitant]
     Indication: BIPOLAR DISORDER
  9. COVERSYL [Concomitant]
  10. XANAX [Concomitant]
  11. AMITRIPTYLINE HCL [Concomitant]
  12. NEXIUM [Concomitant]
  13. CALCIPARINE [Concomitant]
  14. AUGMENTIN '125' [Suspect]
     Route: 048
     Dates: start: 20100201, end: 20100203
  15. BRICANYL [Concomitant]
  16. ATROVENT [Concomitant]

REACTIONS (1)
  - ACUTE GENERALISED EXANTHEMATOUS PUSTULOSIS [None]
